FAERS Safety Report 11599544 (Version 1)
Quarter: 2015Q3

REPORT INFORMATION
  Report Type: Spontaneous
  Country: US (occurrence: US)
  Receive Date: 20150916
  Receipt Date: 20150916
  Transmission Date: 20151125
  Serious: No
  Sender: FDA-Public Use
  Company Number: US-ELI_LILLY_AND_COMPANY-US200710005175

PATIENT
  Age: 84 Year
  Sex: Female

DRUGS (8)
  1. FORTEO [Suspect]
     Active Substance: TERIPARATIDE
     Indication: OSTEOPOROSIS
     Dosage: 20 UG, DAILY (1/D)
     Dates: start: 200604
  2. FORTEO [Suspect]
     Active Substance: TERIPARATIDE
  3. TOPROL XL [Concomitant]
     Active Substance: METOPROLOL SUCCINATE
     Indication: ATRIAL FIBRILLATION
     Dosage: 50 MG, UNK
     Dates: start: 2004
  4. CALCIUM [Concomitant]
     Active Substance: CALCIUM
  5. WARFARIN [Concomitant]
     Active Substance: WARFARIN
     Indication: ATRIAL FIBRILLATION
     Dosage: 2 MG, UNK
     Dates: start: 2006
  6. ARICEPT [Concomitant]
     Active Substance: DONEPEZIL HYDROCHLORIDE
     Indication: DEMENTIA
     Dosage: 5 MEQ, UNK
     Dates: start: 2004
  7. L-GLUTAMINE /USA/ [Concomitant]
     Indication: DEMENTIA
     Dosage: 6 MG, UNK
     Dates: start: 2007
  8. VITAMIN D [Concomitant]
     Active Substance: CHOLECALCIFEROL

REACTIONS (3)
  - Fatigue [Not Recovered/Not Resolved]
  - Heart rate irregular [Recovering/Resolving]
  - Cataract operation [Recovered/Resolved]

NARRATIVE: CASE EVENT DATE: 200604
